FAERS Safety Report 5712429-X (Version None)
Quarter: 2008Q2

REPORT INFORMATION
  Report Type: 
  Country: None (occurrence: None)
  Receive Date: 20080422
  Receipt Date: 20080416
  Transmission Date: 20081010
  Serious: Yes (Other)
  Sender: FDA-Public Use
  Company Number: PHHY2008BR05724

PATIENT
  Age: 91 Year
  Sex: Female
  Weight: 50 kg

DRUGS (11)
  1. SODIUM CHLORIDE [Concomitant]
     Dosage: UNK, BID
     Route: 061
     Dates: start: 19980101
  2. GINKGO BILOBA [Concomitant]
     Indication: PERIPHERAL VASCULAR DISORDER
     Dosage: 1 TABLET DAILY
     Route: 048
     Dates: start: 20030101
  3. VASOGARD [Concomitant]
     Indication: PERIPHERAL VASCULAR DISORDER
     Dosage: 1 TABLET DAILY
     Route: 048
     Dates: start: 20071001
  4. DERMODEX [Concomitant]
     Indication: PROPHYLAXIS
     Dosage: UNK, TID
     Route: 061
  5. MOTILIUM [Concomitant]
     Indication: GASTROINTESTINAL MOTILITY DISORDER
     Dosage: 1 DF, BID
     Route: 048
  6. REMERON [Concomitant]
     Indication: DEPRESSION
     Dosage: 1 TABLET DAILY
     Route: 048
     Dates: start: 20080301
  7. EXELON [Suspect]
     Indication: SENILE DEMENTIA
     Dosage: 3 MG, BID
     Route: 048
  8. EXELON [Suspect]
     Dosage: 1.5 MG, BID
     Route: 048
     Dates: start: 20070101
  9. MODURETIC 5-50 [Concomitant]
     Indication: HYPERTENSION
     Dosage: 1 TABLET DAILY
     Route: 048
     Dates: start: 19980101
  10. TRENTAL [Concomitant]
     Indication: PERIPHERAL VASCULAR DISORDER
     Dosage: 1 DF, BID
     Route: 048
     Dates: start: 19980101
  11. VITAMIN A+E [Concomitant]
     Dosage: UNK, BID
     Route: 061
     Dates: start: 19980101

REACTIONS (6)
  - ABDOMINAL PAIN UPPER [None]
  - ESCHAR [None]
  - FALL [None]
  - FEMUR FRACTURE [None]
  - HYPOKINESIA [None]
  - INTERNAL FIXATION OF FRACTURE [None]
